FAERS Safety Report 21047391 (Version 1)
Quarter: 2022Q3

REPORT INFORMATION
  Report Type: Spontaneous
  Country: US (occurrence: US)
  Receive Date: 20220706
  Receipt Date: 20220706
  Transmission Date: 20221027
  Serious: No
  Sender: FDA-Public Use
  Company Number: US-drreddys-SPO/USA/22/0151883

PATIENT
  Age: 19 Year
  Sex: Female

DRUGS (1)
  1. ZENATANE [Suspect]
     Active Substance: ISOTRETINOIN
     Indication: Acne
     Dosage: RMA ISSUE DATE: 28/OCTOBER/2021 12:00:00 AM, 19/NOVEMBER/2021 12:00:00 AM, 11/JANUARY/2022 04:12:14

REACTIONS (1)
  - Treatment noncompliance [Unknown]
